FAERS Safety Report 18338161 (Version 1)
Quarter: 2020Q4

REPORT INFORMATION
  Report Type: Spontaneous
  Country: US (occurrence: US)
  Receive Date: 20201001
  Receipt Date: 20201001
  Transmission Date: 20210113
  Serious: Yes (Hospitalization, Other)
  Sender: FDA-Public Use
  Company Number: None

PATIENT
  Age: 46 Year
  Sex: Female

DRUGS (7)
  1. TIZANIDINE. [Concomitant]
     Active Substance: TIZANIDINE
  2. BUT/APAP/CAF [Concomitant]
  3. CLOTRIM/BETA [Concomitant]
  4. METHYLPRED [Concomitant]
     Active Substance: METHYLPREDNISOLONE
  5. VIT. D [Concomitant]
  6. OLM MED/HCTZ [Concomitant]
  7. XELJANZ XR [Suspect]
     Active Substance: TOFACITINIB CITRATE
     Indication: PSORIATIC ARTHROPATHY
     Route: 048
     Dates: start: 20200313

REACTIONS (3)
  - Weight increased [None]
  - Psoriasis [None]
  - Bone pain [None]
